FAERS Safety Report 20479946 (Version 1)
Quarter: 2022Q1

REPORT INFORMATION
  Report Type: Spontaneous
  Country: US (occurrence: US)
  Receive Date: 20220216
  Receipt Date: 20220216
  Transmission Date: 20220424
  Serious: Yes (Life-Threatening, Hospitalization)
  Sender: FDA-Public Use
  Company Number: US-MYLANLABS-2022M1012507

PATIENT
  Age: 36 Year
  Sex: Male

DRUGS (6)
  1. METFORMIN [Suspect]
     Active Substance: METFORMIN HYDROCHLORIDE
     Indication: Product used for unknown indication
     Dosage: PILL
     Route: 048
  2. TRAZODONE [Suspect]
     Active Substance: TRAZODONE HYDROCHLORIDE
     Indication: Product used for unknown indication
     Dosage: UNK
     Route: 048
  3. NOREPINEPHRINE [Suspect]
     Active Substance: NOREPINEPHRINE
     Indication: Distributive shock
     Dosage: DRIP
     Route: 042
  4. EPINEPHRINE [Suspect]
     Active Substance: EPINEPHRINE
     Indication: Distributive shock
     Dosage: HIGH DOSE
     Route: 065
  5. VASOPRESSIN [Suspect]
     Active Substance: VASOPRESSIN
     Indication: Distributive shock
     Dosage: HIGH DOSE
     Route: 065
  6. PHENYLEPHRINE [Suspect]
     Active Substance: PHENYLEPHRINE HYDROCHLORIDE
     Indication: Distributive shock
     Dosage: HIGH DOSE
     Route: 065

REACTIONS (8)
  - Intentional overdose [Unknown]
  - Suicide attempt [Unknown]
  - Distributive shock [Recovered/Resolved]
  - Lactic acidosis [Recovered/Resolved]
  - Hypoglycaemia [Recovering/Resolving]
  - Hyperkalaemia [Recovering/Resolving]
  - Expired product administered [Unknown]
  - Drug ineffective [Unknown]
